FAERS Safety Report 8797036 (Version 1)
Quarter: 2012Q4

REPORT INFORMATION
  Report Type: 
  Country: US (occurrence: US)
  Receive Date: 20120919
  Receipt Date: 20120919
  Transmission Date: 20130627
  Serious: Yes (Death)
  Sender: FDA-Public Use
  Company Number: US-GLAXOSMITHKLINE-A0993873A

PATIENT
  Age: 71 Year
  Sex: Male

DRUGS (4)
  1. VOTRIENT [Suspect]
     Indication: RENAL CELL CARCINOMA
     Dosage: 800MG Per day
     Route: 048
     Dates: start: 20120411, end: 201207
  2. FENTANYL [Concomitant]
  3. OXYCODONE [Concomitant]
  4. FLOMAX [Concomitant]

REACTIONS (1)
  - Death [Fatal]
